FAERS Safety Report 15033757 (Version 1)
Quarter: 2018Q2

REPORT INFORMATION
  Report Type: Spontaneous
  Country: US (occurrence: US)
  Receive Date: 20180619
  Receipt Date: 20180619
  Transmission Date: 20180711
  Serious: Yes (Hospitalization, Other)
  Sender: FDA-Public Use
  Company Number: US-B.I. PHARMACEUTICALS,INC./RIDGEFIELD-2018-BI-031244

PATIENT
  Age: 76 Year
  Sex: Female

DRUGS (1)
  1. ATROVENT [Suspect]
     Active Substance: IPRATROPIUM BROMIDE
     Indication: CHRONIC OBSTRUCTIVE PULMONARY DISEASE
     Dosage: STRENGTH: 17 MCG; FORM: INHALATION AEROSOL; ADMIN CORRECT? YES; ACTION TAKEN: DOSE NOT CHANGED
     Route: 055

REACTIONS (4)
  - Pleural effusion [Recovered/Resolved]
  - Gait disturbance [Not Recovered/Not Resolved]
  - Pneumothorax [Recovered/Resolved]
  - Fall [Recovered/Resolved with Sequelae]

NARRATIVE: CASE EVENT DATE: 201805
